FAERS Safety Report 6035363-7 (Version None)
Quarter: 2009Q1

REPORT INFORMATION
  Report Type: 
  Country: None (occurrence: None)
  Receive Date: 20090109
  Receipt Date: 20090109
  Transmission Date: 20090719
  Serious: Yes (Hospitalization, Disabling)
  Sender: FDA-Public Use
  Company Number: None

PATIENT
  Age: 50 Year
  Sex: Female
  Weight: 61.2356 kg

DRUGS (1)
  1. TIKOSYN [Suspect]
     Indication: CARDIAC DISORDER
     Dates: start: 20070829, end: 20070901

REACTIONS (1)
  - HEPATITIS [None]
